FAERS Safety Report 6691293-9 (Version None)
Quarter: 2010Q2

REPORT INFORMATION
  Report Type: 
  Country: None (occurrence: None)
  Receive Date: 20100422
  Receipt Date: 20100421
  Transmission Date: 20101027
  Serious: Yes (Other)
  Sender: FDA-Public Use
  Company Number: US-JNJFOC-20100402220

PATIENT
  Sex: Female
  Weight: 45.41 kg

DRUGS (3)
  1. IMODIUM [Suspect]
     Indication: DIARRHOEA
     Route: 048
  2. LAPATINIB [Suspect]
     Indication: DRUG USE FOR UNKNOWN INDICATION
  3. LAPATINIB [Suspect]

REACTIONS (4)
  - DRUG DOSE OMISSION [None]
  - DRUG INEFFECTIVE [None]
  - HIP FRACTURE [None]
  - WEIGHT DECREASED [None]
